FAERS Safety Report 9859669 (Version 2)
Quarter: 2014Q1

REPORT INFORMATION
  Report Type: Spontaneous
  Country: US (occurrence: US)
  Receive Date: 20140131
  Receipt Date: 20140326
  Transmission Date: 20141002
  Serious: Yes (Hospitalization)
  Sender: FDA-Public Use
  Company Number: US-GLAXOSMITHKLINE-A1058275A

PATIENT
  Age: 41 Year
  Sex: Female

DRUGS (3)
  1. ADVAIR HFA [Suspect]
     Indication: ASTHMA
     Dosage: 1PUFF TWICE PER DAY
     Route: 055
     Dates: start: 2011
  2. VENTOLIN HFA [Suspect]
     Indication: DYSPNOEA
     Route: 055
     Dates: start: 201309
  3. NO CONCURRENT MEDICATION [Concomitant]

REACTIONS (14)
  - Coma [Recovered/Resolved]
  - Intensive care [Recovered/Resolved]
  - Life support [Recovered/Resolved]
  - Pulmonary congestion [Recovering/Resolving]
  - Asthma [Recovering/Resolving]
  - Dyspnoea [Recovering/Resolving]
  - Chronic obstructive pulmonary disease [Recovering/Resolving]
  - Sputum increased [Recovering/Resolving]
  - Respiratory tract irritation [Recovering/Resolving]
  - General physical health deterioration [Recovering/Resolving]
  - Ill-defined disorder [Recovering/Resolving]
  - Smoke sensitivity [Recovering/Resolving]
  - Stress [Recovering/Resolving]
  - Underdose [Recovering/Resolving]
